FAERS Safety Report 5991270-7 (Version None)
Quarter: 2008Q4

REPORT INFORMATION
  Report Type: 
  Country: None (occurrence: None)
  Receive Date: 20081202
  Receipt Date: 20081013
  Transmission Date: 20090506
  Serious: Yes (Other)
  Sender: FDA-Public Use
  Company Number: 8037834

PATIENT
  Sex: Male
  Weight: 41.36 kg

DRUGS (10)
  1. KEPPRA [Suspect]
     Indication: CONVULSION
     Dosage: IV
     Route: 042
     Dates: start: 20080101
  2. KEPPRA [Suspect]
     Indication: CONVULSION
     Dates: start: 20080101, end: 20080101
  3. KEPPRA [Suspect]
     Indication: CONVULSION
     Dosage: 500 MG 2/D
     Dates: start: 20080801
  4. PREDNISONE TAB [Concomitant]
  5. ATARAX [Concomitant]
  6. SCOPOLAMINE [Concomitant]
  7. SYNTHROID [Concomitant]
  8. COLACE [Concomitant]
  9. FLONASE [Concomitant]
  10. GLUCERNA [Concomitant]

REACTIONS (1)
  - LIVER FUNCTION TEST ABNORMAL [None]
